FAERS Safety Report 9839976 (Version 1)
Quarter: 2013Q4

REPORT INFORMATION
  Report Type: Spontaneous
  Country: US (occurrence: None)
  Receive Date: 20131206
  Receipt Date: 20131206
  Transmission Date: 20140711
  Serious: Yes (Other)
  Sender: FDA-Public Use
  Company Number: 369868

PATIENT
  Age: 56 Year
  Sex: Female

DRUGS (2)
  1. NOVOLOG [Suspect]
     Route: 058
     Dates: start: 2012
  2. LANTUS (INSULIN GLARGINE) [Suspect]
     Dates: start: 2012

REACTIONS (4)
  - Hypoglycaemia [None]
  - Weight increased [None]
  - Blood glucose decreased [None]
  - Blood glucose increased [None]
